FAERS Safety Report 20756532 (Version 1)
Quarter: 2022Q2

REPORT INFORMATION
  Report Type: Spontaneous
  Country: US (occurrence: None)
  Receive Date: 20220427
  Receipt Date: 20220427
  Transmission Date: 20220721
  Serious: No
  Sender: FDA-Public Use
  Company Number: 2022A147495

PATIENT
  Sex: Male
  Weight: 92.5 kg

DRUGS (1)
  1. FARXIGA [Suspect]
     Active Substance: DAPAGLIFLOZIN PROPANEDIOL
     Indication: Cardiomyopathy
     Route: 048
     Dates: start: 202005, end: 20220406

REACTIONS (1)
  - Heart rate increased [Unknown]
